FAERS Safety Report 12548720 (Version 2)
Quarter: 2016Q3

REPORT INFORMATION
  Report Type: Spontaneous
  Country: US (occurrence: US)
  Receive Date: 20160712
  Receipt Date: 20160720
  Transmission Date: 20161109
  Serious: Yes (Other)
  Sender: FDA-Public Use
  Company Number: US-TEVA-675287ACC

PATIENT
  Sex: Female
  Weight: 56.75 kg

DRUGS (1)
  1. PARAGARD T 380A [Suspect]
     Active Substance: COPPER
     Indication: CONTRACEPTION
     Route: 065
     Dates: start: 20160531, end: 20160628

REACTIONS (2)
  - Device dislocation [Recovered/Resolved]
  - Adverse event [Unknown]
